FAERS Safety Report 5552007-9 (Version None)
Quarter: 2007Q4

REPORT INFORMATION
  Report Type: 
  Country: None (occurrence: None)
  Receive Date: 20071212
  Receipt Date: 20071205
  Transmission Date: 20080405
  Serious: Yes (Other)
  Sender: FDA-Public Use
  Company Number: RU-PFIZER INC-2007102674

PATIENT
  Age: 62 Year
  Sex: Female

DRUGS (3)
  1. QUINAPRIL HCL [Suspect]
     Indication: HYPERTENSION
     Route: 048
  2. INDAPAMIDE [Concomitant]
     Dosage: DAILY DOSE:1.5MG
     Route: 048
  3. METOPROLOL [Concomitant]
     Dosage: DAILY DOSE:25MG-FREQ:BID
     Route: 048

REACTIONS (1)
  - PYELONEPHRITIS ACUTE [None]
